FAERS Safety Report 11274687 (Version 2)
Quarter: 2015Q3

REPORT INFORMATION
  Report Type: Spontaneous
  Country: IT (occurrence: IT)
  Receive Date: 20150716
  Receipt Date: 20150720
  Transmission Date: 20151125
  Serious: Yes (Hospitalization)
  Sender: FDA-Public Use
  Company Number: IT-009507513-1507ITA005119

PATIENT
  Age: 71 Year
  Sex: Female

DRUGS (5)
  1. RIBAVIRIN. [Suspect]
     Active Substance: RIBAVIRIN
     Indication: HEPATIC CIRRHOSIS
     Dosage: 1200 MG, DAILY
     Route: 048
     Dates: start: 20150612
  2. MK-0000 (001) [Suspect]
     Active Substance: DEXAMETHASONE
  3. SOVALDI [Suspect]
     Active Substance: SOFOSBUVIR
     Indication: HEPATIC CIRRHOSIS
     Dosage: 400 MG, QD
     Route: 048
     Dates: start: 20150612
  4. OLYSIO [Suspect]
     Active Substance: SIMEPREVIR
     Indication: HEPATIC CIRRHOSIS
     Dosage: 150 MG, QD
     Route: 048
     Dates: start: 20150612
  5. HYDROCHLOROTHIAZIDE (+) OLMESARTAN MEDOXOMIL [Concomitant]
     Dosage: 1 DF, UNK
     Route: 048

REACTIONS (1)
  - Pancreatic enzyme abnormality [Unknown]

NARRATIVE: CASE EVENT DATE: 20150625
